FAERS Safety Report 9502731 (Version 1)
Quarter: 2013Q1

REPORT INFORMATION
  Report Type: Spontaneous
  Country: US (occurrence: None)
  Receive Date: 20130225
  Receipt Date: 20130225
  Transmission Date: 20140127
  Serious: Yes (Other)
  Sender: FDA-Public Use
  Company Number: 2012000123

PATIENT
  Age: 60 Year
  Sex: Female
  Weight: 129.3 kg

DRUGS (10)
  1. KEFLEX (CEPHALEXIN) [Suspect]
     Indication: PRODUCT USED FOR UNKNOWN INDICATION
  2. PENICILLIN (BENZYLPENICILLIN POTASSIUM) [Suspect]
     Indication: PRODUCT USED FOR UNKNOWN INDICATION
  3. BIAXIN (CLARITHRYOMYCIN) [Suspect]
  4. MACROBID (NITROFURANTOIN) [Suspect]
  5. NEXIUM [Concomitant]
  6. METFORMIN HCL (METFORMIN HYDROCHLORIDE) [Concomitant]
  7. LEVOTHYROXINE SODIUM [Concomitant]
  8. SIMVASTATIN [Concomitant]
  9. OSTEO BI-FLEX (CHONDROITIN SULFATE, GLUCOSAMINE HYDROCHORIDE) [Concomitant]
  10. RU-HIST D (MEPYRAMINE MALEATE, PHENYLEPHRINE HYDROCHLORIDE) [Concomitant]

REACTIONS (1)
  - Drug hypersensitivity [None]
